FAERS Safety Report 16729543 (Version 1)
Quarter: 2019Q3

REPORT INFORMATION
  Report Type: Spontaneous
  Country: US (occurrence: US)
  Receive Date: 20190705
  Receipt Date: 20190705
  Transmission Date: 20191005
  Serious: No
  Sender: FDA-Public Use
  Company Number: None

PATIENT

DRUGS (1)
  1. MEKINIST [Suspect]
     Active Substance: TRAMETINIB DIMETHYL SULFOXIDE
     Indication: MALIGNANT CRANIAL NERVE NEOPLASM
     Dates: start: 201907

REACTIONS (1)
  - Off label use [None]

NARRATIVE: CASE EVENT DATE: 20190705
